FAERS Safety Report 9069030 (Version 1)
Quarter: 2013Q1

REPORT INFORMATION
  Report Type: Spontaneous
  Country: US (occurrence: None)
  Receive Date: 20130213
  Receipt Date: 20130213
  Transmission Date: 20140127
  Serious: Yes (Hospitalization)
  Sender: FDA-Public Use
  Company Number: None

PATIENT
  Sex: Female
  Weight: 53 kg

DRUGS (6)
  1. CISPLATIN [Suspect]
  2. COMPAZINE [Concomitant]
  3. MIRALAX [Concomitant]
  4. MORPHINE [Concomitant]
  5. SENOKOT [Concomitant]
  6. ZOFRAN [Concomitant]

REACTIONS (4)
  - Vaginal haemorrhage [None]
  - Nausea [None]
  - Vomiting [None]
  - Dehydration [None]
